FAERS Safety Report 13397997 (Version 1)
Quarter: 2017Q2

REPORT INFORMATION
  Report Type: Spontaneous
  Country: AU (occurrence: AU)
  Receive Date: 20170403
  Receipt Date: 20170403
  Transmission Date: 20170830
  Serious: Yes (Other)
  Sender: FDA-Public Use
  Company Number: AU-TEVA-755252ISR

PATIENT
  Sex: Male

DRUGS (6)
  1. PANTOPRAZOLE [Suspect]
     Active Substance: PANTOPRAZOLE
     Route: 065
  2. AMIODARONE [Suspect]
     Active Substance: AMIODARONE
     Route: 065
  3. CYTARABINE. [Suspect]
     Active Substance: CYTARABINE
     Route: 065
  4. IMATINIB [Suspect]
     Active Substance: IMATINIB
     Route: 065
  5. VALACICLOVIR [Suspect]
     Active Substance: VALACYCLOVIR HYDROCHLORIDE
     Route: 065
  6. IDARUBICIN [Suspect]
     Active Substance: IDARUBICIN
     Route: 065

REACTIONS (3)
  - Neutropenic sepsis [Unknown]
  - Acute kidney injury [Unknown]
  - Renal tubular necrosis [Unknown]
